FAERS Safety Report 5055848-X (Version None)
Quarter: 2006Q3

REPORT INFORMATION
  Report Type: 
  Country: None (occurrence: None)
  Receive Date: 20060720
  Receipt Date: 20060707
  Transmission Date: 20061208
  Serious: Yes (Other)
  Sender: FDA-Public Use
  Company Number: US-KINGPHARMUSA00001-K200600894

PATIENT
  Sex: Female

DRUGS (1)
  1. KEMADRIN [Suspect]
     Indication: DRUG ABUSER
     Dosage: 85 MG, SINGLE
     Route: 048
     Dates: start: 20060703, end: 20060703

REACTIONS (3)
  - AGITATION [None]
  - CONFUSIONAL STATE [None]
  - OVERDOSE [None]
